FAERS Safety Report 4633122-0 (Version None)
Quarter: 2005Q2

REPORT INFORMATION
  Report Type: 
  Country: None (occurrence: None)
  Receive Date: 20050412
  Receipt Date: 20050221
  Transmission Date: 20051028
  Serious: Yes (Other)
  Sender: FDA-Public Use
  Company Number: GB-GLAXOSMITHKLINE-B0372368A

PATIENT
  Age: 40 Year
  Sex: Male
  Weight: 69 kg

DRUGS (2)
  1. LAMICTAL [Suspect]
     Route: 048
     Dates: start: 20050106
  2. TAZADOLENE [Concomitant]
     Indication: DEPRESSION
     Dosage: 150MG PER DAY
     Route: 048
     Dates: start: 20050106

REACTIONS (1)
  - PSORIASIS [None]
